FAERS Safety Report 10236137 (Version 1)
Quarter: 2014Q2

REPORT INFORMATION
  Report Type: Report from Study
  Country: CA (occurrence: CA)
  Receive Date: 20140613
  Receipt Date: 20140613
  Transmission Date: 20141212
  Serious: Yes (Other)
  Sender: FDA-Public Use
  Company Number: CA-JNJFOC-20140605401

PATIENT
  Sex: Female

DRUGS (2)
  1. REMICADE [Suspect]
     Indication: CROHN^S DISEASE
     Dosage: PARTNER^S DOSING
     Route: 065
     Dates: start: 20140606
  2. REMICADE [Suspect]
     Indication: CROHN^S DISEASE
     Dosage: PARTNER^S DOSING
     Route: 065
     Dates: start: 20060330

REACTIONS (2)
  - Exposure via father [Recovered/Resolved]
  - Caesarean section [Unknown]
